FAERS Safety Report 8458651-3 (Version None)
Quarter: 2012Q2

REPORT INFORMATION
  Report Type: 
  Country: None (occurrence: None)
  Receive Date: 20120622
  Receipt Date: 20120619
  Transmission Date: 20120825
  Serious: Yes (Other)
  Sender: FDA-Public Use
  Company Number: US-PFIZER INC-2012147836

PATIENT
  Age: 45 Year
  Sex: Male

DRUGS (1)
  1. DILANTIN [Suspect]
     Dosage: 100 MG, UNK

REACTIONS (1)
  - CONVULSION [None]
